FAERS Safety Report 11168659 (Version 2)
Quarter: 2015Q3

REPORT INFORMATION
  Report Type: Spontaneous
  Country: US (occurrence: US)
  Receive Date: 20150605
  Receipt Date: 20150817
  Transmission Date: 20151125
  Serious: Yes (Hospitalization, Other)
  Sender: FDA-Public Use
  Company Number: US-BAYER-2015-302115

PATIENT
  Age: 30 Year
  Sex: Female
  Weight: 61.22 kg

DRUGS (1)
  1. MIRENA [Suspect]
     Active Substance: LEVONORGESTREL
     Indication: CONTRACEPTION
     Dosage: 20 MCG/24HR, CONT
     Route: 015
     Dates: start: 20110303, end: 20120620

REACTIONS (8)
  - Injury [None]
  - Uterine perforation [None]
  - Drug ineffective [None]
  - Pain [None]
  - Pregnancy with contraceptive device [None]
  - Procedural pain [None]
  - Device issue [None]
  - Abortion spontaneous [None]

NARRATIVE: CASE EVENT DATE: 2012
